FAERS Safety Report 15783420 (Version 2)
Quarter: 2019Q1

REPORT INFORMATION
  Report Type: Spontaneous
  Country: PT (occurrence: PT)
  Receive Date: 20190102
  Receipt Date: 20190122
  Transmission Date: 20190417
  Serious: Yes (Hospitalization)
  Sender: FDA-Public Use
  Company Number: PT-MYLANLABS-2018M1096817

PATIENT
  Age: 13 Year
  Sex: Female

DRUGS (3)
  1. IBUPROFEN. [Suspect]
     Active Substance: IBUPROFEN
     Indication: PYREXIA
  2. IBUPROFEN. [Suspect]
     Active Substance: IBUPROFEN
     Indication: HEADACHE
  3. IBUPROFEN. [Suspect]
     Active Substance: IBUPROFEN
     Indication: TONSILLITIS
     Dosage: UNK
     Route: 065

REACTIONS (14)
  - Mobility decreased [Unknown]
  - Genital ulceration [Unknown]
  - Dysuria [Unknown]
  - Urinary retention [Recovered/Resolved]
  - Genital pain [Unknown]
  - Lip erythema [Recovered/Resolved]
  - Vulvovaginal injury [Recovered/Resolved]
  - Genital haemorrhage [Recovered/Resolved]
  - Lip oedema [Recovered/Resolved]
  - Genital odour [Recovered/Resolved]
  - Condition aggravated [Unknown]
  - Oedema genital [Unknown]
  - Vulval disorder [Recovered/Resolved]
  - Genital tract inflammation [Recovered/Resolved]
